FAERS Safety Report 8720483 (Version 4)
Quarter: 2014Q1

REPORT INFORMATION
  Report Type: Report from Study
  Country: US (occurrence: US)
  Receive Date: 20120813
  Receipt Date: 20140108
  Transmission Date: 20141002
  Serious: Yes (Death, Hospitalization, Other)
  Sender: FDA-Public Use
  Company Number: US-ROCHE-1095922

PATIENT
  Age: 58 Year
  Sex: Female
  Weight: 79 kg

DRUGS (9)
  1. BEVACIZUMAB [Suspect]
     Indication: ENDOMETRIAL ADENOCARCINOMA
     Dosage: LAST DOSE ADMINISTERED ON 12/MAY/2011. TOTAL DOSE ADMINISTERED: 1185 MG
     Route: 042
     Dates: start: 20110512
  2. IXABEPILONE [Suspect]
     Indication: ENDOMETRIAL ADENOCARCINOMA
     Dosage: LAST DOSE ADMINISTERD:12/MAY/2011, TOTAL DOSE ADMINISTERED: 56 MG
     Route: 042
     Dates: start: 20110512
  3. CARBOPLATIN [Suspect]
     Indication: ENDOMETRIAL ADENOCARCINOMA
     Dosage: AUC=6; LAST DOSE ADMINISTERED ON:12/MAY/2011, TOTAL DOSE ADMINISTERED: 492 MG.
     Route: 042
     Dates: start: 20110512
  4. NORCO [Concomitant]
  5. COMPAZINE [Concomitant]
  6. LOVENOX [Concomitant]
  7. PROTONIX (UNITED STATES) [Concomitant]
  8. SYNTHROID [Concomitant]
  9. VENTOLIN [Concomitant]

REACTIONS (12)
  - Cardiac arrest [Fatal]
  - Febrile neutropenia [Recovered/Resolved]
  - Supraventricular tachycardia [Recovered/Resolved]
  - Aspiration [Recovered/Resolved]
  - Sepsis [Unknown]
  - Nausea [Unknown]
  - Vomiting [Unknown]
  - Abdominal distension [Unknown]
  - Ileus [Unknown]
  - Hypovolaemia [Unknown]
  - Large intestinal obstruction [Unknown]
  - Hyperkalaemia [Recovered/Resolved]
